FAERS Safety Report 25067799 (Version 1)
Quarter: 2025Q1

REPORT INFORMATION
  Report Type: Spontaneous
  Country: US (occurrence: None)
  Receive Date: 20250311
  Receipt Date: 20250311
  Transmission Date: 20250408
  Serious: Yes (Hospitalization)
  Sender: FDA-CTU
  Company Number: None

PATIENT
  Age: 66 Year
  Sex: Male

DRUGS (9)
  1. ENVARSUS XR [Suspect]
     Active Substance: TACROLIMUS
     Indication: Renal transplant
     Dosage: FREQUENCY : DAILY;?
     Route: 048
  2. MYCOPHENOLIC ACID [Suspect]
     Active Substance: MYCOPHENOLIC ACID
     Indication: Renal transplant
     Dosage: FREQUENCY : TWICE A DAY;?
     Route: 048
  3. AZITHROMYCIN [Concomitant]
     Active Substance: AZITHROMYCIN
  4. AMLODIPINE BESYLATE [Concomitant]
     Active Substance: AMLODIPINE BESYLATE
  5. LEVEMIR FLEX TOUCH PEN INJ 3ML [Concomitant]
  6. VITAMIN B-6 100MG TABLETS [Concomitant]
  7. LOMOTIL 2.5MG TABLETS [Concomitant]
  8. GLIPIZIDE 5MG TABLETS [Concomitant]
  9. ASPIRIN 81MG EC LOW DOSE TABLETS [Concomitant]

REACTIONS (1)
  - Skin infection [None]

NARRATIVE: CASE EVENT DATE: 20250218
